FAERS Safety Report 16862999 (Version 1)
Quarter: 2019Q3

REPORT INFORMATION
  Report Type: Spontaneous
  Country: US (occurrence: US)
  Receive Date: 20190927
  Receipt Date: 20190927
  Transmission Date: 20191005
  Serious: No
  Sender: FDA-Public Use
  Company Number: US-ASTRAZENECA-2019SF30777

PATIENT
  Age: 668 Month
  Sex: Male
  Weight: 93.4 kg

DRUGS (6)
  1. METFORMIN HCL EXTENDED [Concomitant]
     Indication: DIABETES MELLITUS
     Dosage: 500; 4 PILLS OF METFORMIN A DAY
  2. METFORMIN HCL EXTENDED [Concomitant]
     Indication: DIABETES MELLITUS
     Dosage: 500;2 A DAY
  3. BYDUREON BCISE [Suspect]
     Active Substance: EXENATIDE
     Indication: DIABETES MELLITUS
     Route: 058
     Dates: start: 201808
  4. ROSUVASTATIN. [Suspect]
     Active Substance: ROSUVASTATIN
     Indication: BLOOD CHOLESTEROL INCREASED
     Route: 048
  5. ESOMEPRAZOLE. [Suspect]
     Active Substance: ESOMEPRAZOLE MAGNESIUM
     Indication: DYSPEPSIA
     Route: 048
  6. ATORVASTATIN HCTZ [Concomitant]
     Indication: BLOOD PRESSURE ABNORMAL
     Dosage: 75.0MG UNKNOWN

REACTIONS (5)
  - Injection site pain [Unknown]
  - Weight decreased [Unknown]
  - Injection site mass [Unknown]
  - Injection site haemorrhage [Unknown]
  - Wrong technique in device usage process [Unknown]

NARRATIVE: CASE EVENT DATE: 201808
